FAERS Safety Report 14393236 (Version 4)
Quarter: 2018Q1

REPORT INFORMATION
  Report Type: Spontaneous
  Country: US (occurrence: US)
  Receive Date: 20180116
  Receipt Date: 20180314
  Transmission Date: 20180509
  Serious: Yes (Hospitalization)
  Sender: FDA-Public Use
  Company Number: US-VERTEX PHARMACEUTICALS-2018-000233

PATIENT
  Age: 20 Year
  Sex: Female

DRUGS (7)
  1. CIPROFLOXACIN. [Concomitant]
     Active Substance: CIPROFLOXACIN
  2. TOBI [Concomitant]
     Active Substance: TOBRAMYCIN
  3. CAYSTON [Concomitant]
     Active Substance: AZTREONAM
  4. FLUTICASONE. [Concomitant]
     Active Substance: FLUTICASONE
  5. ORKAMBI [Suspect]
     Active Substance: IVACAFTOR\LUMACAFTOR
     Indication: CYSTIC FIBROSIS
     Dosage: 400/250 MG, BID
     Route: 048
     Dates: start: 20161111, end: 20171201
  6. GABAPENTIN. [Concomitant]
     Active Substance: GABAPENTIN
  7. PREDNISONE. [Concomitant]
     Active Substance: PREDNISONE

REACTIONS (3)
  - Infective pulmonary exacerbation of cystic fibrosis [Unknown]
  - Lung infection [Not Recovered/Not Resolved]
  - Infection [Unknown]

NARRATIVE: CASE EVENT DATE: 20171201
